FAERS Safety Report 6517240-8 (Version None)
Quarter: 2009Q4

REPORT INFORMATION
  Report Type: 
  Country: None (occurrence: None)
  Receive Date: 20091217
  Receipt Date: 20091013
  Transmission Date: 20100525
  Serious: Yes (Hospitalization)
  Sender: FDA-Public Use
  Company Number: 89271

PATIENT
  Age: 62 Year
  Sex: Male

DRUGS (1)
  1. CISPLATIN [Suspect]
     Indication: METASTATIC NEOPLASM
     Dosage: 135MG IV
     Route: 042
     Dates: start: 20090416, end: 20090616

REACTIONS (1)
  - CARDIAC DISORDER [None]
